FAERS Safety Report 8824366 (Version 2)
Quarter: 2012Q4

REPORT INFORMATION
  Report Type: Report from Study
  Country: JP (occurrence: JP)
  Receive Date: 20121004
  Receipt Date: 20121220
  Transmission Date: 20130627
  Serious: Yes (Life-Threatening, Hospitalization)
  Sender: FDA-Public Use
  Company Number: JP-009507513-1209JPN003198

PATIENT
  Age: 63 Year
  Sex: Male

DRUGS (8)
  1. PEGINTRON [Suspect]
     Indication: HEPATIC CIRRHOSIS
     Dosage: 50 Microgram, qw
     Route: 058
     Dates: start: 20120703, end: 20120703
  2. PEGINTRON [Suspect]
     Indication: HEPATITIS C
     Dosage: 50 Microgram, qw
     Route: 058
     Dates: start: 20120710, end: 20120710
  3. PEGINTRON [Suspect]
     Dosage: 50 Microgram, qw
     Route: 058
     Dates: start: 20120815, end: 20120815
  4. REBETOL [Suspect]
     Indication: HEPATIC CIRRHOSIS
     Dosage: 600 mg, qd
     Route: 048
     Dates: start: 20120713, end: 20120717
  5. REBETOL [Suspect]
     Indication: HEPATITIS C
     Dosage: 600 mg, qd
     Route: 048
     Dates: start: 20120703, end: 20120705
  6. DIPHENHYDRAMINE HYDROCHLORIDE [Concomitant]
     Indication: RASH
     Dosage: UNK
     Route: 062
     Dates: start: 20120606, end: 20120711
  7. LIDOMEX [Concomitant]
     Indication: RASH
     Dosage: UNK
     Route: 062
     Dates: start: 20120706, end: 20120711
  8. ALLELOCK [Concomitant]
     Indication: RASH
     Dosage: 5 mg, qd
     Route: 048
     Dates: start: 20120706, end: 20120711

REACTIONS (2)
  - Pneumonia [Recovered/Resolved]
  - Rash [Recovered/Resolved]
